FAERS Safety Report 7163785-X (Version None)
Quarter: 2010Q4

REPORT INFORMATION
  Report Type: 
  Country: None (occurrence: None)
  Receive Date: 20101215
  Receipt Date: 20101207
  Transmission Date: 20110411
  Serious: Yes (Hospitalization, Other)
  Sender: FDA-Public Use
  Company Number: US-AMGEN-KDL443179

PATIENT

DRUGS (1)
  1. ENBREL [Suspect]
     Indication: RHEUMATOID ARTHRITIS
     Dosage: 50 MG, QWK
     Route: 058
     Dates: start: 20091001

REACTIONS (11)
  - AMNESIA [None]
  - ARTERIAL SPASM [None]
  - CONTUSION [None]
  - CORONARY ARTERY DISEASE [None]
  - FALL [None]
  - FUNGAL INFECTION [None]
  - INCREASED TENDENCY TO BRUISE [None]
  - IRON DEFICIENCY ANAEMIA [None]
  - MUSCLE SPASMS [None]
  - RHEUMATOID ARTHRITIS [None]
  - SKIN EXFOLIATION [None]
